FAERS Safety Report 4429349-3 (Version None)
Quarter: 2004Q3

REPORT INFORMATION
  Report Type: 
  Country: None (occurrence: None)
  Receive Date: 20040818
  Receipt Date: 20040818
  Transmission Date: 20050211
  Serious: No
  Sender: FDA-Public Use
  Company Number: None

PATIENT
  Age: 45 Year
  Sex: Male

DRUGS (1)
  1. OXCARBAZEPINE  600MG [Suspect]
     Dosage: 600MG  BID  ORAL
     Route: 048

REACTIONS (1)
  - BLOOD SODIUM DECREASED [None]
